FAERS Safety Report 9257730 (Version 3)
Quarter: 2014Q2

REPORT INFORMATION
  Report Type: Spontaneous
  Country: JP (occurrence: JP)
  Receive Date: 20130426
  Receipt Date: 20140604
  Transmission Date: 20141212
  Serious: Yes (Other)
  Sender: FDA-Public Use
  Company Number: JP-NOVOPROD-375881

PATIENT
  Age: 25 Year
  Sex: Male
  Weight: 49 kg

DRUGS (5)
  1. LEVEMIR CHU FLEXPEN [Suspect]
     Indication: TYPE 1 DIABETES MELLITUS
     Dosage: 34 IU, QD
     Route: 058
     Dates: start: 2007, end: 2010
  2. NOVORAPID CHU FLEXPEN [Suspect]
     Indication: TYPE 1 DIABETES MELLITUS
     Dosage: 31 U, QD
     Route: 065
     Dates: start: 2002
  3. NOVORAPID CHU FLEXPEN [Suspect]
     Dosage: 15 U, QD
     Route: 065
  4. BEZATOL [Concomitant]
     Indication: DYSLIPIDAEMIA
     Route: 048
  5. URSO                               /00465701/ [Concomitant]
     Indication: NON-ALCOHOLIC STEATOHEPATITIS
     Route: 048

REACTIONS (1)
  - Hepatomegaly [Recovering/Resolving]
